FAERS Safety Report 7394502-6 (Version None)
Quarter: 2011Q2

REPORT INFORMATION
  Report Type: 
  Country: None (occurrence: None)
  Receive Date: 20110405
  Receipt Date: 20110324
  Transmission Date: 20111010
  Serious: Yes (Hospitalization)
  Sender: FDA-Public Use
  Company Number: PHHY2011BR24856

PATIENT

DRUGS (2)
  1. EXELON [Suspect]
     Dosage: 3.0 MG DAILY
     Route: 048
  2. EXELON [Suspect]
     Dosage: 1.5 MG, UNK
     Route: 048

REACTIONS (1)
  - INTERNATIONAL NORMALISED RATIO INCREASED [None]
